FAERS Safety Report 9805187 (Version 3)
Quarter: 2014Q1

REPORT INFORMATION
  Report Type: Report from Study
  Country: CN (occurrence: CN)
  Receive Date: 20140109
  Receipt Date: 20140121
  Transmission Date: 20141002
  Serious: Yes (Life-Threatening)
  Sender: FDA-Public Use
  Company Number: CN-ROCHE-1330806

PATIENT
  Age: 44 Year
  Sex: Female
  Weight: 60 kg

DRUGS (24)
  1. OBINUTUZUMAB [Suspect]
     Indication: DIFFUSE LARGE B-CELL LYMPHOMA
     Dosage: DATE OF MOST RECENT DOSE (250 ML, DOSE CONCENTRATION : 4MG/ML) PRIOR TO AE ONSET : 02/JAN/2014.
     Route: 042
     Dates: start: 20131226
  2. CYCLOPHOSPHAMIDE [Suspect]
     Indication: DIFFUSE LARGE B-CELL LYMPHOMA
     Dosage: THIS WAS LAST DOSE PRIOR TO SAE
     Route: 042
     Dates: start: 20131227
  3. DOXORUBICIN [Suspect]
     Indication: DIFFUSE LARGE B-CELL LYMPHOMA
     Dosage: THIS WAS LAST DOSE PRIOR TO SAE
     Route: 042
     Dates: start: 20131227
  4. VINCRISTINE [Suspect]
     Indication: DIFFUSE LARGE B-CELL LYMPHOMA
     Dosage: THIS WAS LAST DOSE PRIOR TO SAE
     Route: 040
     Dates: start: 20131227
  5. PREDNISOLONE [Suspect]
     Indication: DIFFUSE LARGE B-CELL LYMPHOMA
     Dosage: MOST RECENT DOSE (100 MG) : 31/DEC/2013.
     Route: 048
     Dates: start: 20131227
  6. DIPHENHYDRAMINE HCL [Concomitant]
     Indication: ALLERGY PROPHYLAXIS
     Route: 065
     Dates: start: 20131226, end: 20131226
  7. DIPHENHYDRAMINE HCL [Concomitant]
     Route: 065
     Dates: start: 20131229, end: 20131229
  8. DIPHENHYDRAMINE HCL [Concomitant]
     Route: 065
     Dates: start: 20140102, end: 20140102
  9. DIPHENHYDRAMINE HCL [Concomitant]
     Route: 065
     Dates: start: 20140104, end: 20140104
  10. DIPHENHYDRAMINE HCL [Concomitant]
     Route: 065
     Dates: start: 20140109, end: 20140109
  11. ETAMSYLATE [Concomitant]
     Indication: UTERINE HAEMORRHAGE
     Route: 065
     Dates: start: 20131229, end: 20131231
  12. VITAMIN K [Concomitant]
     Indication: UTERINE HAEMORRHAGE
     Route: 065
     Dates: start: 20131229, end: 20131230
  13. HAEMOCOAGULASE ATROX [Concomitant]
     Indication: UTERINE HAEMORRHAGE
     Route: 065
     Dates: start: 20131229, end: 20140101
  14. INSULIN [Concomitant]
     Indication: DIABETES MELLITUS
     Route: 065
     Dates: start: 20131220, end: 20140108
  15. PANTOPRAZOLE [Concomitant]
     Indication: PEPTIC ULCER
     Route: 065
     Dates: start: 20131226, end: 20131229
  16. SOLU-MEDROL [Concomitant]
     Indication: ALLERGY PROPHYLAXIS
     Route: 065
     Dates: start: 20131226, end: 20131226
  17. PARACETAMOL [Concomitant]
     Indication: ALLERGY PROPHYLAXIS
     Route: 065
     Dates: start: 20131226, end: 20131226
  18. PARACETAMOL [Concomitant]
     Route: 065
     Dates: start: 20140102, end: 20140102
  19. PARACETAMOL [Concomitant]
     Route: 065
     Dates: start: 20140109, end: 20140109
  20. SODIUM BICARBONATE [Concomitant]
     Route: 065
     Dates: start: 20131226, end: 20131229
  21. LIDOCAIN [Concomitant]
     Route: 065
     Dates: start: 20131220, end: 20131226
  22. TROPISETRON HCL [Concomitant]
     Indication: PROPHYLAXIS OF NAUSEA AND VOMITING
     Route: 065
     Dates: start: 20131227, end: 20131227
  23. TROPISETRON HCL [Concomitant]
     Indication: PROPHYLAXIS OF NAUSEA AND VOMITING
  24. IMIPENEM + CILASTATIN [Concomitant]
     Route: 065
     Dates: start: 20140103, end: 20140106

REACTIONS (1)
  - Febrile neutropenia [Recovered/Resolved]
